FAERS Safety Report 9318685 (Version 1)
Quarter: 2013Q2

REPORT INFORMATION
  Report Type: Spontaneous
  Country: PL (occurrence: None)
  Receive Date: 20130524
  Receipt Date: 20130524
  Transmission Date: 20140414
  Serious: Yes (Life-Threatening, Hospitalization, Disabling)
  Sender: FDA-Public Use
  Company Number: 2013153601

PATIENT
  Age: 5 Month
  Sex: Male
  Weight: 6.8 kg

DRUGS (1)
  1. FRAGMIN (DALTEPARIN SODIUM) SOLUTION FOR INJECTION [Suspect]
     Indication: HYPOPLASTIC LEFT HEART SYNDROME
     Dosage: 750 IU, TWICE DAILY SUBCUTANEOUS
     Route: 058
     Dates: start: 20120912

REACTIONS (2)
  - Ischaemic stroke [None]
  - Cerebral artery embolism [None]
